FAERS Safety Report 4716116-6 (Version None)
Quarter: 2005Q2

REPORT INFORMATION
  Report Type: 
  Country: None (occurrence: None)
  Receive Date: 20050630
  Receipt Date: 20041202
  Transmission Date: 20051028
  Serious: Yes (Hospitalization)
  Sender: FDA-Public Use
  Company Number: USA041285131

PATIENT
  Age: 46 Year
  Sex: Female
  Weight: 55 kg

DRUGS (1)
  1. HUMALOG [Suspect]
     Dates: start: 19990101

REACTIONS (3)
  - BLOOD GLUCOSE INCREASED [None]
  - KETONURIA [None]
  - VOMITING [None]
